FAERS Safety Report 8824595 (Version 4)
Quarter: 2013Q2

REPORT INFORMATION
  Report Type: Spontaneous
  Country: US (occurrence: US)
  Receive Date: 20121004
  Receipt Date: 20130613
  Transmission Date: 20140414
  Serious: Yes (Life-Threatening, Other)
  Sender: FDA-Public Use
  Company Number: US-BAYER-2012-101565

PATIENT
  Age: 56 Year
  Sex: Female
  Weight: 44 kg

DRUGS (2)
  1. BAYER ADVANCED ASPIRIN EXTRA STRENGTH [Suspect]
     Indication: HEADACHE
     Dosage: 1 UNK, UNK
     Route: 048
     Dates: start: 20120921, end: 20120921
  2. BAYER ADVANCED ASPIRIN EXTRA STRENGTH [Suspect]
     Indication: MIGRAINE

REACTIONS (7)
  - Obstructive airways disorder [Recovered/Resolved]
  - Throat irritation [Not Recovered/Not Resolved]
  - Laryngitis [Not Recovered/Not Resolved]
  - Aphonia [None]
  - Oropharyngeal pain [Not Recovered/Not Resolved]
  - Foreign body [Recovered/Resolved]
  - Choking [Recovered/Resolved]
